FAERS Safety Report 5861848-X (Version None)
Quarter: 2008Q3

REPORT INFORMATION
  Report Type: 
  Country: None (occurrence: None)
  Receive Date: 20080827
  Receipt Date: 20080715
  Transmission Date: 20090109
  Serious: No
  Sender: FDA-Public Use
  Company Number: US-ABBOTT-08P-163-0462937-00

PATIENT
  Sex: Male
  Weight: 109.87 kg

DRUGS (6)
  1. COATED PDS [Suspect]
     Indication: BLOOD CHOLESTEROL ABNORMAL
     Dosage: 1 EVERY NIGHT
     Route: 048
     Dates: start: 20080516, end: 20080613
  2. COATED PDS [Suspect]
     Indication: CARDIAC DISORDER
     Dosage: 1 EVERY NIGHT
     Dates: start: 20080613, end: 20080711
  3. COATED PDS [Suspect]
     Dosage: 1 EVERY NIGHT
     Dates: start: 20080711
  4. TELMISARTAN [Concomitant]
     Indication: DRUG USE FOR UNKNOWN INDICATION
     Route: 048
  5. ACETYLSALICYLIC ACID SRT [Concomitant]
     Indication: DRUG USE FOR UNKNOWN INDICATION
     Dosage: TO TAKE BEFORE MICARDIS
     Route: 048
  6. ATENOLOL [Concomitant]
     Indication: DRUG USE FOR UNKNOWN INDICATION
     Route: 048

REACTIONS (8)
  - ASTHENOPIA [None]
  - EYE SWELLING [None]
  - FLATULENCE [None]
  - PARAESTHESIA [None]
  - PRURITUS [None]
  - STRABISMUS [None]
  - VISION BLURRED [None]
  - VISUAL IMPAIRMENT [None]
